FAERS Safety Report 9342677 (Version 2)
Quarter: 2013Q4

REPORT INFORMATION
  Report Type: Spontaneous
  Country: NL (occurrence: NL)
  Receive Date: 20130611
  Receipt Date: 20131017
  Transmission Date: 20140711
  Serious: No
  Sender: FDA-Public Use
  Company Number: NL-TEVA-409758ISR

PATIENT
  Sex: Male

DRUGS (1)
  1. METFORMINE HCL [Suspect]
     Indication: DIABETES MELLITUS
     Dosage: 2000 MILLIGRAM DAILY;
     Dates: start: 201205

REACTIONS (5)
  - Vitamin B12 deficiency [Unknown]
  - Premature ageing [Not Recovered/Not Resolved]
  - Abdominal pain [Not Recovered/Not Resolved]
  - Diarrhoea [Not Recovered/Not Resolved]
  - Decreased appetite [Not Recovered/Not Resolved]
